FAERS Safety Report 6688723-5 (Version None)
Quarter: 2010Q2

REPORT INFORMATION
  Report Type: 
  Country: None (occurrence: None)
  Receive Date: 20100420
  Receipt Date: 20100416
  Transmission Date: 20101027
  Serious: Yes (Hospitalization)
  Sender: FDA-Public Use
  Company Number: A0855488A

PATIENT
  Age: 59 Year
  Sex: Female

DRUGS (2)
  1. LOVAZA [Suspect]
     Dosage: 1CAP TWICE PER DAY
     Route: 048
     Dates: start: 20091101
  2. THYROID MEDICATION [Concomitant]

REACTIONS (2)
  - APPENDICITIS PERFORATED [None]
  - CHANGE OF BOWEL HABIT [None]
